FAERS Safety Report 8794305 (Version 2)
Quarter: 2012Q4

REPORT INFORMATION
  Report Type: 
  Country: AR (occurrence: AR)
  Receive Date: 20120918
  Receipt Date: 20121025
  Transmission Date: 20130627
  Serious: Yes (Other)
  Sender: FDA-Public Use
  Company Number: AR-AMGEN-ARGSP2010009026

PATIENT
  Age: 58 Year
  Sex: Female
  Weight: 52 kg

DRUGS (6)
  1. ENBREL [Suspect]
     Indication: RHEUMATOID ARTHRITIS
     Dosage: 50 mg, weekly
     Route: 058
     Dates: start: 2008, end: 20101015
  2. METHOTREXATE [Suspect]
     Dosage: 7.5 mg, UNK
     Dates: start: 201206
  3. METHOTREXATE [Suspect]
     Dosage: 15 mg, UNK
  4. IBUPROFEN [Concomitant]
     Dosage: UNK
  5. FOLIC ACID [Concomitant]
     Dosage: UNK
  6. CALCIUM [Concomitant]
     Dosage: UNK

REACTIONS (9)
  - Uterine haemorrhage [Unknown]
  - Lymphopenia [Unknown]
  - White blood cell count decreased [Recovering/Resolving]
  - Red blood cell count decreased [Recovering/Resolving]
  - Uterine polyp [Unknown]
  - Immunosuppression [Unknown]
  - Platelet count decreased [Unknown]
  - Neutropenia [Unknown]
  - Cellulitis [Recovered/Resolved]
